FAERS Safety Report 11039661 (Version 2)
Quarter: 2015Q2

REPORT INFORMATION
  Report Type: Spontaneous
  Country: IL (occurrence: IL)
  Receive Date: 20150416
  Receipt Date: 20150506
  Transmission Date: 20150821
  Serious: Yes (Death, Hospitalization, Other)
  Sender: FDA-Public Use
  Company Number: IL-CELGENE-082-50794-13014962

PATIENT

DRUGS (2)
  1. AZACITIDINE. [Suspect]
     Active Substance: AZACITIDINE
     Indication: MYELODYSPLASTIC SYNDROME
     Route: 065
  2. AZACITIDINE. [Suspect]
     Active Substance: AZACITIDINE
     Indication: ACUTE MYELOID LEUKAEMIA

REACTIONS (10)
  - Pneumonia [Fatal]
  - Infection [Unknown]
  - Gastrointestinal infection [Fatal]
  - Febrile neutropenia [Unknown]
  - Skin infection [Fatal]
  - Upper respiratory tract infection [Fatal]
  - Disease progression [Fatal]
  - Sepsis syndrome [Fatal]
  - H1N1 influenza [Unknown]
  - Urinary tract infection [Unknown]
